FAERS Safety Report 12933089 (Version 1)
Quarter: 2016Q4

REPORT INFORMATION
  Report Type: Not Available
  Country: FR (occurrence: FR)
  Receive Date: 20161111
  Receipt Date: 20161111
  Transmission Date: 20170207
  Serious: Yes (Hospitalization, Other)
  Sender: FDA-Public Use
  Company Number: FR-MUNDIPHARMA DS AND PHARMACOVIGILANCE-GBR-2016-0041471

PATIENT
  Age: 60 Year
  Sex: Male

DRUGS (5)
  1. OXYCONTIN [Suspect]
     Active Substance: OXYCODONE HYDROCHLORIDE
     Dosage: UNK
  2. OXYCONTIN [Suspect]
     Active Substance: OXYCODONE HYDROCHLORIDE
     Indication: INTERVERTEBRAL DISCITIS
     Dosage: 10 MG, BID
     Route: 048
     Dates: start: 201606
  3. PLAQUENIL                          /00072602/ [Suspect]
     Active Substance: HYDROXYCHLOROQUINE DIPHOSPHATE
     Dosage: UNK
     Route: 048
     Dates: start: 20160201, end: 201602
  4. MINOCYCLINE [Suspect]
     Active Substance: MINOCYCLINE\MINOCYCLINE HYDROCHLORIDE
     Indication: INTERVERTEBRAL DISCITIS
     Dosage: 100 MG, BID
     Route: 048
     Dates: start: 20160223, end: 20161007
  5. PLAQUENIL                          /00072602/ [Suspect]
     Active Substance: HYDROXYCHLOROQUINE DIPHOSPHATE
     Indication: INTERVERTEBRAL DISCITIS
     Dosage: 200 MG, TID
     Route: 048
     Dates: start: 201602, end: 20161007

REACTIONS (2)
  - Eczema [Recovering/Resolving]
  - Streptococcal bacteraemia [Unknown]

NARRATIVE: CASE EVENT DATE: 201610
